FAERS Safety Report 5052059-9 (Version None)
Quarter: 2006Q3

REPORT INFORMATION
  Report Type: 
  Country: None (occurrence: None)
  Receive Date: 20060711
  Receipt Date: 20060703
  Transmission Date: 20061208
  Serious: Yes (Hospitalization)
  Sender: FDA-Public Use
  Company Number: S06-FRA-01780-01

PATIENT
  Age: 81 Year
  Sex: Male
  Weight: 68 kg

DRUGS (6)
  1. MEMANTINE HCL [Suspect]
     Indication: DEMENTIA ALZHEIMER'S TYPE
     Dosage: 20 MG QD, PO
     Route: 048
     Dates: start: 20050101, end: 20060126
  2. ALLOPURINOL [Concomitant]
  3. PERINDOPRIL ERBUMINE [Concomitant]
  4. LASIX [Concomitant]
  5. ASPIRIN [Concomitant]
  6. SECTRAL [Concomitant]

REACTIONS (1)
  - NEPHROTIC SYNDROME [None]
